FAERS Safety Report 5780361-1 (Version None)
Quarter: 2008Q2

REPORT INFORMATION
  Report Type: 
  Country: None (occurrence: None)
  Receive Date: 20080620
  Receipt Date: 20080618
  Transmission Date: 20081010
  Serious: Yes (Other)
  Sender: FDA-Public Use
  Company Number: B0525648A

PATIENT
  Age: 66 Year
  Sex: Male

DRUGS (23)
  1. CARVEDILOL [Suspect]
     Indication: ANGINA PECTORIS
     Dosage: 5MG PER DAY
     Route: 048
     Dates: start: 20080421, end: 20080521
  2. PLAVIX [Suspect]
     Indication: ANGINA PECTORIS
     Dosage: 300MG PER DAY
     Route: 048
     Dates: start: 20080420, end: 20080507
  3. ASPIRIN [Concomitant]
  4. NU-LOTAN [Concomitant]
  5. LASIX [Concomitant]
  6. VASOLAN [Concomitant]
  7. MUCOSTA [Concomitant]
  8. WARFARIN SODIUM [Concomitant]
  9. DEPAKENE [Concomitant]
  10. FRANDOL [Concomitant]
  11. AMARYL [Concomitant]
     Dates: start: 20080423
  12. ACTOS [Concomitant]
     Dates: start: 20080423
  13. MELBIN [Concomitant]
  14. PLETAL [Concomitant]
     Dates: start: 20080507
  15. VEEN F [Concomitant]
  16. MILLISROL (JAPAN) [Concomitant]
     Route: 065
  17. SOLDEM [Concomitant]
  18. SUPPLEMENT [Concomitant]
     Dates: start: 20080427
  19. HEPARIN [Concomitant]
     Dates: start: 20080427
  20. KAYTWO [Concomitant]
     Route: 065
  21. SODIUM CHLORIDE [Concomitant]
     Route: 065
  22. HUMULIN R [Concomitant]
     Dates: start: 20080421, end: 20080422
  23. CEFAMEZIN [Concomitant]
     Route: 065
     Dates: start: 20080421, end: 20080423

REACTIONS (2)
  - PLATELET COUNT DECREASED [None]
  - WHITE BLOOD CELL COUNT DECREASED [None]
